FAERS Safety Report 7440030-9 (Version None)
Quarter: 2011Q2

REPORT INFORMATION
  Report Type: 
  Country: None (occurrence: None)
  Receive Date: 20110427
  Receipt Date: 20110419
  Transmission Date: 20111010
  Serious: Yes (Hospitalization, Other)
  Sender: FDA-Public Use
  Company Number: PHHO2011BR04603

PATIENT
  Sex: Male

DRUGS (7)
  1. MYFORTIC [Suspect]
     Indication: RENAL TRANSPLANT
     Dosage: 720 MG DAILY
     Route: 048
     Dates: start: 20101224
  2. BLINDED NO TREATMENT RECEIVED [Suspect]
     Indication: RENAL TRANSPLANT
     Dosage: CODE NOT BROKEN
     Route: 048
     Dates: start: 20101206, end: 20101223
  3. PREDNISONE [Suspect]
     Indication: RENAL TRANSPLANT
     Dosage: 40 MG DAILY
     Route: 048
     Dates: start: 20101206
  4. FLUCONAZOLE [Concomitant]
     Indication: ORAL CANDIDIASIS
     Dosage: UNK
  5. BLINDED ERL 080A [Suspect]
     Indication: RENAL TRANSPLANT
     Dosage: CODE NOT BROKEN
     Route: 048
     Dates: start: 20101206, end: 20101223
  6. BLINDED AEB071 [Suspect]
     Indication: RENAL TRANSPLANT
     Dosage: CODE NOT BROKEN
     Route: 048
     Dates: start: 20101206, end: 20101223
  7. PROGRAF [Suspect]
     Indication: RENAL TRANSPLANT
     Dosage: 10 MG DAILY
     Route: 048
     Dates: start: 20101206

REACTIONS (10)
  - SINUSITIS [None]
  - OBSTRUCTION [None]
  - PAROPHTHALMIA [None]
  - RENAL IMPAIRMENT [None]
  - PYELOCALIECTASIS [None]
  - HYPERCALCAEMIA [None]
  - EYE PAIN [None]
  - EXOPHTHALMOS [None]
  - KIDNEY TRANSPLANT REJECTION [None]
  - SINUS HEADACHE [None]
